FAERS Safety Report 13334730 (Version 4)
Quarter: 2018Q1

REPORT INFORMATION
  Report Type: Report from Study
  Country: None (occurrence: US)
  Receive Date: 20170314
  Receipt Date: 20180104
  Transmission Date: 20180508
  Serious: Yes (Hospitalization)
  Sender: FDA-Public Use
  Company Number: US-ABBVIE-17K-163-1900910-00

PATIENT
  Age: 51 Year
  Sex: Male

DRUGS (2)
  1. HUMIRA [Suspect]
     Active Substance: ADALIMUMAB
     Route: 058
  2. HUMIRA [Suspect]
     Active Substance: ADALIMUMAB
     Indication: CROHN^S DISEASE
     Dosage: FOUR PENS LOADING DOSE
     Route: 058
     Dates: start: 20161202, end: 20161202

REACTIONS (15)
  - Fatigue [Not Recovered/Not Resolved]
  - Nausea [Recovered/Resolved]
  - Paranasal sinus discomfort [Unknown]
  - Diarrhoea [Not Recovered/Not Resolved]
  - Drug effect decreased [Unknown]
  - Hypersensitivity [Unknown]
  - Loss of consciousness [Recovered/Resolved]
  - Disorientation [Unknown]
  - Insomnia [Unknown]
  - Syncope [Unknown]
  - Dizziness [Unknown]
  - Pyrexia [Unknown]
  - Nasopharyngitis [Unknown]
  - Dizziness [Unknown]
  - Fall [Unknown]

NARRATIVE: CASE EVENT DATE: 201612
